FAERS Safety Report 8128690-0 (Version None)
Quarter: 2012Q1

REPORT INFORMATION
  Report Type: 
  Country: None (occurrence: None)
  Receive Date: 20120210
  Receipt Date: 20101228
  Transmission Date: 20120608
  Serious: No
  Sender: FDA-Public Use
  Company Number: US-BRISTOL-MYERS SQUIBB COMPANY-15461775

PATIENT
  Age: 58 Year
  Sex: Female
  Weight: 86 kg

DRUGS (16)
  1. ORENCIA [Suspect]
     Indication: RHEUMATOID ARTHRITIS
     Dates: start: 20101001
  2. COZAAR [Concomitant]
  3. NORVASC [Concomitant]
  4. SYNTHROID [Concomitant]
  5. ASPIRIN [Concomitant]
  6. CRESTOR [Concomitant]
  7. METFORMIN HCL [Concomitant]
  8. TOPROL-XL [Concomitant]
  9. PLAVIX [Concomitant]
  10. LYRICA [Concomitant]
  11. ISOSORBIDE DINITRATE [Concomitant]
  12. IMURAN [Concomitant]
  13. POTASSIUM [Concomitant]
     Dosage: PILL
  14. ZOLOFT [Concomitant]
  15. ESTROGENIC SUBSTANCE [Concomitant]
  16. OXYCODONE HCL [Concomitant]

REACTIONS (2)
  - TOOTH ABSCESS [None]
  - DRUG INEFFECTIVE [None]
